FAERS Safety Report 25567759 (Version 2)
Quarter: 2025Q4

REPORT INFORMATION
  Report Type: Report from Study
  Country: US (occurrence: US)
  Receive Date: 20250716
  Receipt Date: 20251230
  Transmission Date: 20260117
  Serious: Yes (Other)
  Sender: TAKEDA
  Company Number: US-TAKEDA-2024TUS083287

PATIENT
  Age: 58 Year
  Sex: Female

DRUGS (6)
  1. VEDOLIZUMAB [Suspect]
     Active Substance: VEDOLIZUMAB
     Indication: Colitis ulcerative
     Dosage: 108 MILLIGRAM, Q2WEEKS
  2. VEDOLIZUMAB [Suspect]
     Active Substance: VEDOLIZUMAB
  3. VEDOLIZUMAB [Suspect]
     Active Substance: VEDOLIZUMAB
     Indication: Colitis ulcerative
     Dosage: UNK
  4. MESALAMINE [Concomitant]
     Active Substance: MESALAMINE
     Indication: Colitis ulcerative
     Dosage: 2 DOSAGE FORM, QD
  5. CurQD 2 [Concomitant]
     Indication: Colitis ulcerative
     Dosage: UNK
  6. BUDESONIDE [Concomitant]
     Active Substance: BUDESONIDE
     Indication: Colitis ulcerative
     Dosage: UNK

REACTIONS (14)
  - Colitis ulcerative [Unknown]
  - Cataract [Unknown]
  - Injection site haemorrhage [Unknown]
  - COVID-19 [Unknown]
  - Rhinovirus infection [Unknown]
  - Injection site pain [Unknown]
  - Device defective [Unknown]
  - Product dose omission issue [Unknown]
  - Poor venous access [Unknown]
  - Stress [Unknown]
  - Herpes zoster [Unknown]
  - Muscle spasms [Unknown]
  - Arthralgia [Unknown]
  - Upper respiratory tract infection [Unknown]
